FAERS Safety Report 11008022 (Version 8)
Quarter: 2016Q2

REPORT INFORMATION
  Report Type: Report from Study
  Country: FR (occurrence: FR)
  Receive Date: 20150410
  Receipt Date: 20160513
  Transmission Date: 20160815
  Serious: Yes (Hospitalization)
  Sender: FDA-Public Use
  Company Number: FR-ROCHE-1562104

PATIENT
  Age: 69 Year
  Sex: Male

DRUGS (5)
  1. RANIBIZUMAB [Suspect]
     Active Substance: RANIBIZUMAB
     Indication: DIABETIC RETINAL OEDEMA
     Dosage: IN LEFT EYE, 0.5 MG (0.05ML)
     Route: 050
     Dates: start: 20141001
  2. RANIBIZUMAB [Suspect]
     Active Substance: RANIBIZUMAB
     Dosage: LEFT EYE
     Route: 050
     Dates: start: 20150715
  3. RANIBIZUMAB [Suspect]
     Active Substance: RANIBIZUMAB
     Indication: VISUAL IMPAIRMENT
     Dosage: IN LEFT EYE?LAST DOSE PRIOR TO SAE 26/NOV/2014
     Route: 050
     Dates: start: 20141126, end: 20141126
  4. RANIBIZUMAB [Suspect]
     Active Substance: RANIBIZUMAB
     Dosage: LEFT EYE
     Route: 050
     Dates: start: 20150903
  5. RANIBIZUMAB [Suspect]
     Active Substance: RANIBIZUMAB
     Dosage: LEFT EYE
     Route: 050
     Dates: start: 20141029

REACTIONS (6)
  - Arrhythmia [Unknown]
  - Eye pain [Unknown]
  - Diabetic retinopathy [Unknown]
  - Macular hole [Recovered/Resolved]
  - Cataract [Recovered/Resolved]
  - Visual acuity reduced [Unknown]

NARRATIVE: CASE EVENT DATE: 201502
